FAERS Safety Report 5130693-5 (Version None)
Quarter: 2006Q4

REPORT INFORMATION
  Report Type: 
  Country: None (occurrence: None)
  Receive Date: 20061019
  Receipt Date: 20060806
  Transmission Date: 20070319
  Serious: Yes (Death, Hospitalization)
  Sender: FDA-Public Use
  Company Number: JP-ROCHE-458603

PATIENT
  Age: 74 Year
  Sex: Female
  Weight: 40 kg

DRUGS (8)
  1. CELLCEPT [Suspect]
     Route: 048
     Dates: start: 20060228, end: 20060329
  2. CELLCEPT [Suspect]
     Dosage: DISCONTINUED.
     Route: 048
     Dates: start: 20060403, end: 20060619
  3. RITUXAN [Suspect]
     Dosage: DISCONTINUED
     Route: 042
     Dates: start: 20060328, end: 20060329
  4. SIMULECT [Suspect]
     Dosage: REPORTED AS SIMULECT (BASILIXIMAB (GENETIC RECOMBINATION))
     Route: 042
     Dates: start: 20060329, end: 20060329
  5. SIMULECT [Suspect]
     Route: 042
     Dates: start: 20060402, end: 20060402
  6. PROGRAF [Suspect]
     Route: 048
     Dates: start: 20060325, end: 20060630
  7. SOLU-MEDROL [Suspect]
     Indication: DRUG USE FOR UNKNOWN INDICATION
     Dosage: FORM REPORTED AS INTRAVENOUS DRIP.
     Route: 042
     Dates: start: 20060622, end: 20060625
  8. PREDONINE [Suspect]
     Indication: DRUG USE FOR UNKNOWN INDICATION
     Route: 048
     Dates: start: 20060403, end: 20060619

REACTIONS (5)
  - ADENOVIRUS INFECTION [None]
  - DISSEMINATED INTRAVASCULAR COAGULATION [None]
  - NEUTROPHIL COUNT DECREASED [None]
  - PLATELET COUNT DECREASED [None]
  - PYREXIA [None]
